FAERS Safety Report 24806357 (Version 1)
Quarter: 2025Q1

REPORT INFORMATION
  Report Type: Spontaneous
  Country: CN (occurrence: CN)
  Receive Date: 20250103
  Receipt Date: 20250103
  Transmission Date: 20250408
  Serious: Yes (Other)
  Sender: NOVARTIS
  Company Number: CN-002147023-NVSC2024CN247768

PATIENT

DRUGS (1)
  1. CERITINIB [Suspect]
     Active Substance: CERITINIB
     Indication: Non-small cell lung cancer
     Dosage: 3 DOSAGE FORM, QD ((150 MGX150 S), ORALLY WITH MEALS, ONCE A DAY, 3 PILLS EACH TIME, AND THE MAINTEN
     Route: 048

REACTIONS (1)
  - Respiratory depression [Unknown]
